FAERS Safety Report 9046924 (Version 3)
Quarter: 2014Q3

REPORT INFORMATION
  Report Type: Spontaneous
  Country: IT (occurrence: IT)
  Receive Date: 20130204
  Receipt Date: 20140702
  Transmission Date: 20150326
  Serious: Yes (Hospitalization, Disabling)
  Sender: FDA-Public Use
  Company Number: IT-BAYER-2013-011364

PATIENT
  Age: 21 Year
  Sex: Female

DRUGS (1)
  1. YASMIN [Suspect]
     Active Substance: DROSPIRENONE\ETHINYL ESTRADIOL
     Indication: POLYCYSTIC OVARIES
     Dosage: DAILY DOSE 1 DF
     Route: 048
     Dates: start: 2011, end: 20120210

REACTIONS (5)
  - Speech disorder [None]
  - Generalised tonic-clonic seizure [None]
  - Mental impairment [None]
  - Loss of consciousness [None]
  - Tongue biting [None]

NARRATIVE: CASE EVENT DATE: 201109
